FAERS Safety Report 8880272 (Version 1)
Quarter: 2012Q4

REPORT INFORMATION
  Report Type: 
  Country: MX (occurrence: MX)
  Receive Date: 20121101
  Receipt Date: 20121101
  Transmission Date: 20130627
  Serious: Yes (Hospitalization)
  Sender: FDA-Public Use
  Company Number: PHHY2012MX097922

PATIENT
  Sex: Female

DRUGS (1)
  1. HYDROXYPROPYL METHYLCELLULOSE 100 [Suspect]
     Indication: MACULAR DEGENERATION
     Dosage: 3 mg/ml, TID

REACTIONS (1)
  - Corneal opacity [Not Recovered/Not Resolved]
